FAERS Safety Report 10095713 (Version 3)
Quarter: 2015Q3

REPORT INFORMATION
  Report Type: Spontaneous
  Country: US (occurrence: US)
  Receive Date: 20140422
  Receipt Date: 20150812
  Transmission Date: 20151125
  Serious: No
  Sender: FDA-Public Use
  Company Number: US-GILEAD-2012-0063547

PATIENT
  Age: 78 Year
  Sex: Female

DRUGS (2)
  1. LETAIRIS [Suspect]
     Active Substance: AMBRISENTAN
     Indication: PULMONARY ARTERIAL HYPERTENSION
     Dosage: 5 MG, QD
     Route: 048
  2. LETAIRIS [Suspect]
     Active Substance: AMBRISENTAN
     Indication: PULMONARY HYPERTENSION

REACTIONS (3)
  - Pneumonia [Unknown]
  - Dyspnoea [Unknown]
  - Urinary tract infection [Unknown]

NARRATIVE: CASE EVENT DATE: 201209
